FAERS Safety Report 6228680-9 (Version None)
Quarter: 2009Q2

REPORT INFORMATION
  Report Type: 
  Country: None (occurrence: None)
  Receive Date: 20090615
  Receipt Date: 20090609
  Transmission Date: 20091009
  Serious: Yes (Hospitalization)
  Sender: FDA-Public Use
  Company Number: US-KINGPHARMUSA00001-K200900688

PATIENT
  Age: 70 Year
  Sex: Female

DRUGS (9)
  1. ALTACE [Suspect]
     Indication: HYPERTENSION
     Dosage: 20 MG, QD
     Route: 048
     Dates: start: 20090415, end: 20090501
  2. ALTACE [Suspect]
     Dosage: 10 MG, QD
     Route: 048
     Dates: start: 20090501
  3. TRIMIPRAMINE MALEATE [Suspect]
     Indication: DEPRESSION
     Dosage: 25 MG, QD
     Route: 048
  4. TELMISARTAN [Suspect]
     Indication: HYPERTENSION
     Dosage: 1 DF, QD
     Route: 048
     Dates: end: 20090501
  5. TRAMADOL HCL [Suspect]
     Indication: PAIN
     Dosage: 300 MG, QD
     Route: 048
     Dates: start: 19990101
  6. METOPROLOL SUCCINATE [Concomitant]
     Indication: HYPERTENSION
     Dosage: 50 MG, UNK
     Route: 048
  7. PANTOPRAZOLE SODIUM [Concomitant]
     Indication: REFLUX OESOPHAGITIS
     Dosage: 20 MG, UNK
     Route: 048
  8. SIMVASTATIN [Concomitant]
     Indication: HYPERCHOLESTEROLAEMIA
     Dosage: 200 MG, UNK
     Route: 048
  9. ZOLPIDEM TARTRATE [Concomitant]
     Indication: SLEEP DISORDER
     Dosage: 10 MG, UNK
     Route: 048

REACTIONS (4)
  - HYPERTENSIVE CRISIS [None]
  - HYPONATRAEMIA [None]
  - MALAISE [None]
  - RESTLESSNESS [None]
